FAERS Safety Report 13276196 (Version 1)
Quarter: 2017Q1

REPORT INFORMATION
  Report Type: Spontaneous
  Country: US (occurrence: US)
  Receive Date: 20170227
  Receipt Date: 20170227
  Transmission Date: 20170428
  Serious: No
  Sender: FDA-Public Use
  Company Number: None

PATIENT
  Age: 34 Year
  Sex: Female
  Weight: 100.3 kg

DRUGS (5)
  1. VITAFUSION PRENATAL GUMMIES [Concomitant]
  2. COLACE [Concomitant]
     Active Substance: DOCUSATE SODIUM
  3. TUMS ULTRA [Suspect]
     Active Substance: CALCIUM CARBONATE
     Indication: DYSPEPSIA
     Dosage: ?          QUANTITY:2 TABLET(S);?
     Route: 048
     Dates: start: 20170225, end: 20170226
  4. RECTIV NITROGLYCERIN [Concomitant]
  5. TUMS ULTRA [Suspect]
     Active Substance: CALCIUM CARBONATE
     Indication: ABDOMINAL DISCOMFORT
     Dosage: ?          QUANTITY:2 TABLET(S);?
     Route: 048
     Dates: start: 20170225, end: 20170226

REACTIONS (5)
  - Product physical consistency issue [None]
  - Product quality issue [None]
  - Throat irritation [None]
  - Abdominal pain upper [None]
  - Sensation of foreign body [None]

NARRATIVE: CASE EVENT DATE: 20170226
